FAERS Safety Report 12639921 (Version 2)
Quarter: 2016Q4

REPORT INFORMATION
  Report Type: Report from Study
  Country: JP (occurrence: JP)
  Receive Date: 20160810
  Receipt Date: 20161010
  Transmission Date: 20170207
  Serious: Yes (Other)
  Sender: FDA-Public Use
  Company Number: PHJP2016JP022624

PATIENT
  Age: 54 Year
  Sex: Male

DRUGS (43)
  1. PREDNISOLON [Concomitant]
     Active Substance: PREDNISOLONE
     Dosage: 100 MG, QD
     Route: 065
     Dates: start: 20160316, end: 20160316
  2. LOXOPROFEN NA [Concomitant]
     Active Substance: LOXOPROFEN SODIUM
     Dosage: 60 MG, QD
     Route: 065
     Dates: start: 20160316, end: 20160316
  3. BAKTAR [Concomitant]
     Active Substance: SULFAMETHOXAZOLE\TRIMETHOPRIM
     Indication: PRODUCT USED FOR UNKNOWN INDICATION
     Dosage: 1 G, QD
     Route: 065
  4. OFATUMUMAB [Suspect]
     Active Substance: OFATUMUMAB
     Dosage: 2000 MG, QD
     Route: 041
     Dates: start: 20160120
  5. OFATUMUMAB [Suspect]
     Active Substance: OFATUMUMAB
     Dosage: 2000 MG, QD
     Route: 041
     Dates: start: 20160217
  6. PREDNISOLON [Concomitant]
     Active Substance: PREDNISOLONE
     Dosage: 100 MG, QD
     Route: 065
     Dates: start: 20160210, end: 20160210
  7. EPINASTINE [Concomitant]
     Active Substance: EPINASTINE
     Dosage: 20 MG, QD
     Route: 065
     Dates: start: 20160203, end: 20160203
  8. OFATUMUMAB [Suspect]
     Active Substance: OFATUMUMAB
     Indication: CHRONIC LYMPHOCYTIC LEUKAEMIA
     Dosage: 300 MG, QD
     Route: 041
     Dates: start: 20151222
  9. OFATUMUMAB [Suspect]
     Active Substance: OFATUMUMAB
     Dosage: 2000 MG, QD
     Route: 041
     Dates: start: 20160210
  10. OFATUMUMAB [Suspect]
     Active Substance: OFATUMUMAB
     Dosage: 2000 MG, QD
     Route: 041
     Dates: start: 20160316
  11. PREDNISOLON [Concomitant]
     Active Substance: PREDNISOLONE
     Dosage: 100 MG, QD
     Route: 065
     Dates: start: 20160113, end: 20160113
  12. LOXOPROFEN NA [Concomitant]
     Active Substance: LOXOPROFEN SODIUM
     Dosage: 60 MG, QD
     Route: 065
     Dates: start: 20160120, end: 20160120
  13. EPINASTINE [Concomitant]
     Active Substance: EPINASTINE
     Dosage: 20 MG, QD
     Route: 065
     Dates: start: 20160415, end: 20160415
  14. VALACICLOVIR [Concomitant]
     Active Substance: VALACYCLOVIR HYDROCHLORIDE
     Indication: PRODUCT USED FOR UNKNOWN INDICATION
     Dosage: 500 MG, QD
     Route: 065
  15. OFATUMUMAB [Suspect]
     Active Substance: OFATUMUMAB
     Dosage: 2000 MG, QD
     Route: 041
     Dates: start: 20160113
  16. OFATUMUMAB [Suspect]
     Active Substance: OFATUMUMAB
     Dosage: 2000 MG, QD
     Route: 041
     Dates: start: 20160415, end: 20160415
  17. PREDNISOLON [Concomitant]
     Active Substance: PREDNISOLONE
     Indication: PRODUCT USED FOR UNKNOWN INDICATION
     Dosage: 100 MG, QD
     Route: 065
     Dates: start: 20151222, end: 20151222
  18. PREDNISOLON [Concomitant]
     Active Substance: PREDNISOLONE
     Dosage: 100 MG, QD
     Route: 065
     Dates: start: 20160106, end: 20160106
  19. PREDNISOLON [Concomitant]
     Active Substance: PREDNISOLONE
     Dosage: 100 MG, QD
     Route: 065
     Dates: start: 20160127, end: 20160127
  20. PREDNISOLON [Concomitant]
     Active Substance: PREDNISOLONE
     Dosage: 100 MG, QD
     Route: 065
     Dates: start: 20160203, end: 20160203
  21. PREDNISOLON [Concomitant]
     Active Substance: PREDNISOLONE
     Dosage: 100 MG, QD
     Route: 065
     Dates: start: 20160217, end: 20160217
  22. PREDNISOLON [Concomitant]
     Active Substance: PREDNISOLONE
     Dosage: 100 MG, QD
     Route: 065
     Dates: start: 20160415, end: 20160415
  23. OFATUMUMAB [Suspect]
     Active Substance: OFATUMUMAB
     Dosage: 2000 MG, QD
     Route: 041
     Dates: start: 20160203
  24. LOXOPROFEN NA [Concomitant]
     Active Substance: LOXOPROFEN SODIUM
     Dosage: 60 MG, QD
     Route: 065
     Dates: start: 20160127, end: 20160127
  25. LOXOPROFEN NA [Concomitant]
     Active Substance: LOXOPROFEN SODIUM
     Dosage: 60 MG, QD
     Route: 065
     Dates: start: 20160217, end: 20160217
  26. EPINASTINE [Concomitant]
     Active Substance: EPINASTINE
     Dosage: 20 MG, QD
     Route: 065
     Dates: start: 20160127, end: 20160127
  27. EPINASTINE [Concomitant]
     Active Substance: EPINASTINE
     Dosage: 20 MG, QD
     Route: 065
     Dates: start: 20160217, end: 20160217
  28. PREDNISOLON [Concomitant]
     Active Substance: PREDNISOLONE
     Dosage: 100 MG, QD
     Route: 065
     Dates: start: 20160120, end: 20160120
  29. LOXOPROFEN NA [Concomitant]
     Active Substance: LOXOPROFEN SODIUM
     Dosage: 60 MG, QD
     Route: 065
     Dates: start: 20160106, end: 20160106
  30. EPINASTINE [Concomitant]
     Active Substance: EPINASTINE
     Indication: PRODUCT USED FOR UNKNOWN INDICATION
     Dosage: 20 MG, QD
     Route: 065
     Dates: start: 20151222, end: 20151222
  31. EPINASTINE [Concomitant]
     Active Substance: EPINASTINE
     Dosage: 20 MG, QD
     Route: 065
     Dates: start: 20160113, end: 20160113
  32. EPINASTINE [Concomitant]
     Active Substance: EPINASTINE
     Dosage: 20 MG, QD
     Route: 065
     Dates: start: 20160120, end: 20160120
  33. EPINASTINE [Concomitant]
     Active Substance: EPINASTINE
     Dosage: 20 MG, QD
     Route: 065
     Dates: start: 20160210, end: 20160210
  34. OFATUMUMAB [Suspect]
     Active Substance: OFATUMUMAB
     Dosage: 2000 MG, QD
     Route: 041
     Dates: start: 20160106
  35. OFATUMUMAB [Suspect]
     Active Substance: OFATUMUMAB
     Dosage: 2000 MG, QD
     Route: 041
     Dates: start: 20160127
  36. LOXOPROFEN NA [Concomitant]
     Active Substance: LOXOPROFEN SODIUM
     Dosage: 60 MG, QD
     Route: 065
     Dates: start: 20160210, end: 20160210
  37. EPINASTINE [Concomitant]
     Active Substance: EPINASTINE
     Dosage: 20 MG, QD
     Route: 065
     Dates: start: 20160106, end: 20160106
  38. EPINASTINE [Concomitant]
     Active Substance: EPINASTINE
     Dosage: 20 MG, QD
     Route: 065
     Dates: start: 20160316, end: 20160316
  39. ITRIZOLE [Concomitant]
     Active Substance: ITRACONAZOLE
     Indication: PRODUCT USED FOR UNKNOWN INDICATION
     Dosage: 20 ML, QD
     Route: 065
  40. LOXOPROFEN NA [Concomitant]
     Active Substance: LOXOPROFEN SODIUM
     Indication: PRODUCT USED FOR UNKNOWN INDICATION
     Dosage: 60 MG, QD
     Route: 065
     Dates: start: 20151222, end: 20151222
  41. LOXOPROFEN NA [Concomitant]
     Active Substance: LOXOPROFEN SODIUM
     Dosage: 60 MG, QD
     Route: 065
     Dates: start: 20160113, end: 20160113
  42. LOXOPROFEN NA [Concomitant]
     Active Substance: LOXOPROFEN SODIUM
     Dosage: 60 MG, QD
     Route: 065
     Dates: start: 20160203, end: 20160203
  43. LOXOPROFEN NA [Concomitant]
     Active Substance: LOXOPROFEN SODIUM
     Dosage: 60 MG, QD
     Route: 065
     Dates: start: 20160415, end: 20160415

REACTIONS (6)
  - Erythema [Recovered/Resolved]
  - Malignant neoplasm progression [Unknown]
  - Feeling hot [Recovered/Resolved]
  - Neutrophil count decreased [Recovering/Resolving]
  - Cellulitis [Recovering/Resolving]
  - Chronic lymphocytic leukaemia [Unknown]

NARRATIVE: CASE EVENT DATE: 20160427
